FAERS Safety Report 7668344-8 (Version None)
Quarter: 2011Q3

REPORT INFORMATION
  Report Type: 
  Country: None (occurrence: None)
  Receive Date: 20110808
  Receipt Date: 20110728
  Transmission Date: 20111222
  Serious: Yes (Other)
  Sender: FDA-Public Use
  Company Number: GB-TEVA-294647ISR

PATIENT
  Age: 45 Year
  Sex: Male
  Weight: 74.09 kg

DRUGS (1)
  1. TOPIRAMATE [Suspect]

REACTIONS (2)
  - FURUNCLE [None]
  - RASH [None]
